FAERS Safety Report 7783335-4 (Version None)
Quarter: 2011Q3

REPORT INFORMATION
  Report Type: 
  Country: None (occurrence: None)
  Receive Date: 20110926
  Receipt Date: 20110916
  Transmission Date: 20111222
  Serious: Yes (Other)
  Sender: FDA-Public Use
  Company Number: IND1-FR-2011-0044

PATIENT
  Sex: Female

DRUGS (2)
  1. CHRONO-INDOCID (INDOMETACIN) (UNKNOWN) (INDOMETACIN) [Suspect]
     Indication: PRODUCT USED FOR UNKNOWN INDICATION
     Dates: end: 20110401
  2. ENBREL [Suspect]
     Indication: ANKYLOSING SPONDYLITIS
     Dates: start: 20110401

REACTIONS (1)
  - UVEITIS [None]
